FAERS Safety Report 11994837 (Version 5)
Quarter: 2021Q2

REPORT INFORMATION
  Report Type: Spontaneous
  Country: FR (occurrence: FR)
  Receive Date: 20160203
  Receipt Date: 20210423
  Transmission Date: 20210716
  Serious: Yes (Other)
  Sender: FDA-Public Use
  Company Number: FR-JNJFOC-20160123823

PATIENT
  Sex: Male

DRUGS (6)
  1. EPITOMAX [Suspect]
     Active Substance: TOPIRAMATE
     Indication: MIGRAINE
     Dosage: 1 CAPSULE ON MORNING AND 1 CAPSULE ON EVENING THE SECOND WEEK
     Route: 048
  2. EPITOMAX [Suspect]
     Active Substance: TOPIRAMATE
     Dosage: 1 CAPSULE ON MORNING AND 2 CAPSULES ON EVENING THE THIRD WEEK
     Route: 048
  3. EPITOMAX [Suspect]
     Active Substance: TOPIRAMATE
     Route: 048
     Dates: start: 20010117
  4. EPITOMAX [Suspect]
     Active Substance: TOPIRAMATE
     Dosage: 2 CAPSULES ON MORNING AND EVENING STARTING ON THE FOURTH WEEK
     Route: 048
  5. EPITOMAX [Suspect]
     Active Substance: TOPIRAMATE
     Indication: HEADACHE
     Dosage: 1 CAPSULE ON EVENING EVERY EVENING ON THE FIRST WEEK
     Route: 048
     Dates: start: 20050117
  6. EPITOMAX [Suspect]
     Active Substance: TOPIRAMATE
     Dosage: FROM THIS DATE, TOPIRAMATE DOSAGE WAS DECREASED FROM 2 TABLET TWICE A DAY TO ONE TABLET TWICE A DAY.
     Route: 048
     Dates: start: 20080505, end: 20090215

REACTIONS (3)
  - Alopecia [Unknown]
  - Depression [Unknown]
  - Impaired quality of life [Unknown]
